FAERS Safety Report 9116048 (Version 3)
Quarter: 2013Q2

REPORT INFORMATION
  Report Type: Spontaneous
  Country: JP (occurrence: JP)
  Receive Date: 20130225
  Receipt Date: 20130405
  Transmission Date: 20140414
  Serious: No
  Sender: FDA-Public Use
  Company Number: JP-NAPPMUNDI-GBR-2013-0013237

PATIENT
  Age: 86 Year
  Sex: Female

DRUGS (4)
  1. BUPRENORPHINE TRANSDERMAL SYSTEM [Suspect]
     Indication: PAIN
     Dosage: 10 MCG, Q1H
     Route: 062
     Dates: start: 20121225, end: 20130205
  2. BUPRENORPHINE TRANSDERMAL SYSTEM [Suspect]
     Dosage: 5 MCG, Q1H
     Route: 062
     Dates: start: 20121210, end: 20121225
  3. TRAMACET [Concomitant]
     Indication: ANALGESIC THERAPY
     Dosage: UNK
     Route: 048
     Dates: start: 20130205
  4. NOVAMIN                            /00013301/ [Concomitant]
     Indication: PROPHYLAXIS OF NAUSEA AND VOMITING
     Dosage: UNK
     Dates: start: 20121001

REACTIONS (1)
  - Haematuria [Unknown]
